FAERS Safety Report 12400888 (Version 2)
Quarter: 2016Q2

REPORT INFORMATION
  Report Type: Spontaneous
  Country: US (occurrence: US)
  Receive Date: 20160525
  Receipt Date: 20160525
  Transmission Date: 20160815
  Serious: No
  Sender: FDA-Public Use
  Company Number: US-SA-2015SA102825

PATIENT
  Age: 66 Year
  Sex: Male

DRUGS (1)
  1. LANTUS [Suspect]
     Active Substance: INSULIN GLARGINE
     Indication: TYPE 1 DIABETES MELLITUS
     Dosage: DOSE: 10 U AM AND 10 U PM
     Route: 065
     Dates: start: 201407

REACTIONS (4)
  - Drug administration error [Unknown]
  - Visual acuity reduced [Unknown]
  - Blood glucose increased [Unknown]
  - Drug ineffective [Unknown]
